FAERS Safety Report 9771876 (Version 4)
Quarter: 2014Q1

REPORT INFORMATION
  Report Type: Spontaneous
  Country: US (occurrence: US)
  Receive Date: 20131219
  Receipt Date: 20140129
  Transmission Date: 20141002
  Serious: Yes (Death, Hospitalization)
  Sender: FDA-Public Use
  Company Number: US-BAXTER-2013BAX050659

PATIENT
  Sex: Male

DRUGS (2)
  1. DIANEAL LOW CALCIUM [Suspect]
     Indication: PERITONEAL DIALYSIS
     Route: 033
     Dates: end: 20140111
  2. EXTRANEAL [Suspect]
     Indication: PERITONEAL DIALYSIS
     Route: 033
     Dates: end: 20140111

REACTIONS (5)
  - Cardiac arrest [Fatal]
  - Cellulitis [Not Recovered/Not Resolved]
  - Cellulitis of male external genital organ [Recovering/Resolving]
  - Anorectal cellulitis [Recovering/Resolving]
  - Sepsis [Unknown]
